FAERS Safety Report 5691657-6 (Version None)
Quarter: 2008Q2

REPORT INFORMATION
  Report Type: 
  Country: None (occurrence: None)
  Receive Date: 20080402
  Receipt Date: 20060405
  Transmission Date: 20081010
  Serious: Yes (Death)
  Sender: FDA-Public Use
  Company Number: US-ROCHE-443557

PATIENT
  Age: 50 Year
  Sex: Male

DRUGS (4)
  1. PEGASYS [Suspect]
     Dosage: STRENGTH REPORTED AS 180 MCG/0.5 ML. FORM REPORTED AS SYRINGE.
     Route: 058
     Dates: start: 20060201
  2. RIBAVIRIN [Suspect]
     Route: 048
     Dates: start: 20060201
  3. LASIX [Concomitant]
     Route: 048
  4. NADOLOL [Concomitant]
     Indication: HYPERTENSION

REACTIONS (5)
  - DEATH [None]
  - DYSPNOEA [None]
  - HAEMATOCRIT DECREASED [None]
  - HAEMOGLOBIN DECREASED [None]
  - MYALGIA [None]
